FAERS Safety Report 17882459 (Version 3)
Quarter: 2020Q3

REPORT INFORMATION
  Report Type: Spontaneous
  Country: DE (occurrence: DE)
  Receive Date: 20200610
  Receipt Date: 20200820
  Transmission Date: 20201103
  Serious: Yes (Other)
  Sender: FDA-Public Use
  Company Number: DE-MYLANLABS-2020M1055065

PATIENT
  Age: 52 Year
  Sex: Male
  Weight: 86 kg

DRUGS (39)
  1. NOVAMINSULFON LICHTENSTEIN [Concomitant]
     Active Substance: METAMIZOLE SODIUM
     Dosage: UNK
  2. ATORVASTATIN [Concomitant]
     Active Substance: ATORVASTATIN
     Dosage: UNK (ACCORD)
  3. FENOFIBRAT AL [Concomitant]
     Dosage: UNK (250 RETARD)
  4. UNACID PD                          /00903602/ [Concomitant]
     Active Substance: SULTAMICILLIN TOSYLATE
     Dosage: UNK
     Route: 048
  5. CANDESARTAN 1A PHARMA [Concomitant]
     Active Substance: CANDESARTAN CILEXETIL
     Dosage: UNK
  6. VALSARTAN. [Suspect]
     Active Substance: VALSARTAN
     Indication: PRODUCT USED FOR UNKNOWN INDICATION
     Dosage: UNK (STADAPHARM)
  7. DICLO KD [Concomitant]
     Active Substance: DICLOFENAC SODIUM
     Dosage: UNK (75 AKUT)
  8. DICLOFENAC RATIO [Concomitant]
     Dosage: UNK
  9. DEXAMETHASON                       /00016001/ [Concomitant]
     Active Substance: DEXAMETHASONE
     Dosage: UNK
  10. BETAVERT                           /00141802/ [Concomitant]
     Dosage: UNK
  11. LIMPTAR N [Concomitant]
     Dosage: UNK
  12. BISOHEXAL [Concomitant]
     Active Substance: BISOPROLOL FUMARATE
     Dosage: UNK
  13. POLYSPECTRAN                       /00038301/ [Concomitant]
     Dosage: UNK
  14. ROXI                               /00928801/ [Concomitant]
     Dosage: UNK (ARISTO)
  15. JANUMET [Concomitant]
     Active Substance: METFORMIN HYDROCHLORIDE\SITAGLIPTIN PHOSPHATE
     Dosage: UNK
  16. ROSUHEXAL [Concomitant]
     Dosage: UNK
  17. DIHYDROCODEINE THIOCYANATE [Concomitant]
     Active Substance: DIHYDROCODEINE THIOCYANATE
     Dosage: UNK
  18. FLUVASTATIN ABZ [Concomitant]
     Active Substance: FLUVASTATIN SODIUM
     Dosage: UNK (HART)
  19. ROXITHROMYCIN [Concomitant]
     Active Substance: ROXITHROMYCIN
     Dosage: UNK
  20. PANTOPRAZOL ARISTO [Concomitant]
     Active Substance: PANTOPRAZOLE SODIUM
     Dosage: UNK
  21. COTRIM FORTE [Concomitant]
     Active Substance: SULFAMETHOXAZOLE\TRIMETHOPRIM
     Dosage: UNK
  22. VALSARTAN 1A PHARMA [Suspect]
     Active Substance: VALSARTAN
     Indication: PRODUCT USED FOR UNKNOWN INDICATION
     Dosage: UNK
  23. NOVORAPID [Concomitant]
     Active Substance: INSULIN ASPART
     Dosage: UNK (FLEXPEN)
  24. MCP AL [Concomitant]
     Dosage: UNK (MCP AL 10)
  25. BISOPROLOL RATIOPHARM [Concomitant]
     Active Substance: BISOPROLOL
     Dosage: UNK
  26. VALSARTAN DURA 80 MG FILMTABLETTEN [Suspect]
     Active Substance: VALSARTAN
     Indication: PRODUCT USED FOR UNKNOWN INDICATION
     Dosage: 80 MILLIGRAM, QD
     Dates: start: 20130227
  27. JARDIANCE [Concomitant]
     Active Substance: EMPAGLIFLOZIN
     Dosage: UNK
  28. VALSACOR [Suspect]
     Active Substance: VALSARTAN
     Indication: PRODUCT USED FOR UNKNOWN INDICATION
     Dosage: UNK (TAD PHARMA)
  29. LEVEMIR [Concomitant]
     Active Substance: INSULIN DETEMIR
     Dosage: UNK (FLEXPEN)
  30. IBUFLAM                            /00109201/ [Concomitant]
     Active Substance: IBUPROFEN
     Dosage: UNK (LICHTENSTEIN)
  31. AMOXI 1A PHARMA [Concomitant]
     Active Substance: AMOXICILLIN
     Dosage: UNK (AMOXI 1000)
  32. TRIAMGALEN [Concomitant]
     Active Substance: TRIAMCINOLONE ACETONIDE
     Dosage: UNK
  33. PANTOPRAZOL PENSA [Concomitant]
     Active Substance: PANTOPRAZOLE SODIUM
     Dosage: UNK
  34. ASS 1 A PHARMA [Concomitant]
     Active Substance: ASPIRIN
     Dosage: UNK
  35. BRILIQUE [Concomitant]
     Active Substance: TICAGRELOR
     Dosage: UNK
  36. PANTOPRAZOL PUREN [Concomitant]
     Active Substance: PANTOPRAZOLE SODIUM
     Dosage: UNK
  37. VALSARTAN DURA 80 MG FILMTABLETTEN [Suspect]
     Active Substance: VALSARTAN
     Dosage: 80 MILLIGRAM, QD
     Dates: start: 2015
  38. EZETIMIBE. [Concomitant]
     Active Substance: EZETIMIBE
     Dosage: UNK (EZETIMIBE RATIOPHARM)
  39. CANDESARTAN CILEXETIL. [Concomitant]
     Active Substance: CANDESARTAN CILEXETIL
     Dosage: UNK

REACTIONS (12)
  - Myalgia [Unknown]
  - Hyperhidrosis [Unknown]
  - Mental impairment [Unknown]
  - Fear of death [Unknown]
  - Recalled product administered [Unknown]
  - Dry mouth [Unknown]
  - Chest pain [Unknown]
  - Restlessness [Unknown]
  - Quality of life decreased [Unknown]
  - Nausea [Unknown]
  - Bone pain [Unknown]
  - Fear of disease [Unknown]
